FAERS Safety Report 8918492 (Version 1)
Quarter: 2012Q4

REPORT INFORMATION
  Report Type: 
  Country: US (occurrence: US)
  Receive Date: 20121120
  Receipt Date: 20121120
  Transmission Date: 20130627
  Serious: No
  Sender: FDA-Public Use
  Company Number: US-ASTRAZENECA-2012SE18450

PATIENT
  Age: 62 Year
  Sex: Female

DRUGS (6)
  1. NEXIUM [Suspect]
     Indication: GASTROOESOPHAGEAL REFLUX DISEASE
     Route: 048
  2. NEXIUM [Suspect]
     Indication: ULCER
     Route: 048
  3. NEXIUM [Suspect]
     Indication: ABDOMINAL DISCOMFORT
     Route: 048
  4. NEXIUM [Suspect]
     Indication: GASTROINTESTINAL DISORDER
     Route: 048
  5. PRILOSEC [Suspect]
     Route: 048
  6. ZANTAC [Concomitant]

REACTIONS (5)
  - Therapeutic response unexpected [Unknown]
  - Diabetes mellitus [Unknown]
  - Nervousness [Unknown]
  - Intentional drug misuse [Unknown]
  - Drug ineffective [Unknown]
